FAERS Safety Report 5013840-5 (Version None)
Quarter: 2006Q2

REPORT INFORMATION
  Report Type: 
  Country: None (occurrence: None)
  Receive Date: 20060530
  Receipt Date: 20060516
  Transmission Date: 20061013
  Serious: Yes (Hospitalization)
  Sender: FDA-Public Use
  Company Number: FR-ROCHE-448477

PATIENT
  Age: 56 Year
  Sex: Male

DRUGS (7)
  1. ROVALCYTE [Suspect]
     Route: 048
     Dates: start: 20060227, end: 20060324
  2. CELLCEPT [Suspect]
     Indication: PROPHYLAXIS AGAINST TRANSPLANT REJECTION
     Route: 048
     Dates: start: 20060213, end: 20060324
  3. CELLCEPT [Suspect]
     Route: 048
  4. XATRAL [Concomitant]
  5. TENORMIN [Concomitant]
  6. SOLUPRED [Concomitant]
  7. DITROPAN [Concomitant]

REACTIONS (7)
  - AGRANULOCYTOSIS [None]
  - BACTERIAL CULTURE POSITIVE [None]
  - CHILLS [None]
  - GENERAL PHYSICAL HEALTH DETERIORATION [None]
  - HEPATITIS A VIRUS [None]
  - PYREXIA [None]
  - RENAL DISORDER [None]
